FAERS Safety Report 21692931 (Version 1)
Quarter: 2022Q4

REPORT INFORMATION
  Report Type: Other
  Country: CA (occurrence: CA)
  Receive Date: 20221207
  Receipt Date: 20221207
  Transmission Date: 20230112
  Serious: Yes (Disabling, Other)
  Sender: FDA-Public Use
  Company Number: CA-APOTEX-2022AP016246

PATIENT
  Age: 76 Year
  Sex: Female
  Weight: 67 kg

DRUGS (1)
  1. RISEDRONATE SODIUM [Suspect]
     Active Substance: RISEDRONATE SODIUM
     Indication: Osteoporosis
     Dosage: 150 MILLIGRAM, Q.M.T.
     Route: 048

REACTIONS (4)
  - Disturbance in attention [Recovered/Resolved]
  - Impaired work ability [Recovered/Resolved]
  - Mood altered [Recovered/Resolved]
  - Headache [Recovered/Resolved]
